FAERS Safety Report 5070378-7 (Version None)
Quarter: 2006Q3

REPORT INFORMATION
  Report Type: 
  Country: None (occurrence: None)
  Receive Date: 20060731
  Receipt Date: 20060717
  Transmission Date: 20061208
  Serious: Yes (Death, Life-Threatening)
  Sender: FDA-Public Use
  Company Number: 2005EU001900

PATIENT
  Age: 58 Year
  Sex: Male

DRUGS (9)
  1. FK506 (TACROLIMUS) CAPSULE [Suspect]
     Indication: LIVER TRANSPLANT
     Dosage: 3 MG, BID, ORAL
     Route: 048
     Dates: start: 20050626, end: 20050825
  2. MYCOPHENOLATE MOFETIL [Suspect]
     Indication: LIVER TRANSPLANT
     Dosage: SEE IMAGE
     Dates: start: 20050714, end: 20050817
  3. MYCOPHENOLATE MOFETIL [Suspect]
     Indication: LIVER TRANSPLANT
     Dosage: SEE IMAGE
     Dates: start: 20050626, end: 20050825
  4. METHYLPREDNISOLONE (METHYLPREDNISOLONE) [Suspect]
     Indication: LIVER TRANSPLANT
     Dosage: 500.00 MG, UID/QD
     Dates: start: 20050626, end: 20050712
  5. PREDNISONE TAB [Suspect]
     Indication: LIVER TRANSPLANT
     Dosage: 20 MG, UID/QD
     Dates: start: 20050626, end: 20050729
  6. METHYLPREDNISOLONE (METHYLPREDNISOLONE) [Suspect]
     Indication: LIVER TRANSPLANT
     Dosage: 500.00 MG, UID/QD
     Dates: start: 20050626, end: 20050712
  7. ANTITHROMBIN III (ANTITHROMBIN III) [Concomitant]
  8. TRIMETHOPRIM [Concomitant]
  9. CALCIUM (CALCIUM) [Concomitant]

REACTIONS (18)
  - ABDOMINAL INFECTION [None]
  - ASPIRATION TRACHEAL ABNORMAL [None]
  - BONE MARROW FAILURE [None]
  - CANDIDURIA [None]
  - CONVULSION [None]
  - ENTEROCOCCAL INFECTION [None]
  - FUNGUS BODY FLUID IDENTIFIED [None]
  - HAEMORRHAGE INTRACRANIAL [None]
  - HEPATIC FAILURE [None]
  - LUNG INFECTION [None]
  - MULTI-ORGAN FAILURE [None]
  - POSTOPERATIVE INFECTION [None]
  - PSEUDOMONAS INFECTION [None]
  - RENAL FAILURE [None]
  - REPERFUSION INJURY [None]
  - SEPSIS [None]
  - SURGICAL PROCEDURE REPEATED [None]
  - URINARY TRACT INFECTION FUNGAL [None]
